FAERS Safety Report 19615578 (Version 1)
Quarter: 2021Q3

REPORT INFORMATION
  Report Type: Spontaneous
  Country: NL (occurrence: NL)
  Receive Date: 20210727
  Receipt Date: 20210727
  Transmission Date: 20211014
  Serious: Yes (Hospitalization, Other)
  Sender: FDA-Public Use
  Company Number: NL-ELI_LILLY_AND_COMPANY-NL202009004664

PATIENT
  Age: 5 Year
  Sex: Male

DRUGS (13)
  1. SOMATROPIN. [Suspect]
     Active Substance: SOMATROPIN
     Dosage: 0.2 MG/M2
     Route: 065
     Dates: start: 2019
  2. SOMATROPIN. [Suspect]
     Active Substance: SOMATROPIN
     Dosage: 0.7 MG/M2, UNKNOWN
     Route: 065
     Dates: start: 2020
  3. NORDITROPIN [Suspect]
     Active Substance: SOMATROPIN
     Dosage: 0.3 MG/M2, DAILY
     Route: 065
  4. NORDITROPIN [Suspect]
     Active Substance: SOMATROPIN
     Dosage: 0.7 MG/M2, DAILY
     Route: 065
     Dates: start: 2019
  5. SOMATROPIN. [Suspect]
     Active Substance: SOMATROPIN
     Dosage: 0.3 MG/M2, UNKNOWN
     Route: 065
     Dates: start: 2020
  6. SOMATROPIN. [Suspect]
     Active Substance: SOMATROPIN
     Dosage: 0.2 MG/M2, UNKNOWN
     Route: 065
     Dates: start: 2020
  7. NORDITROPIN [Suspect]
     Active Substance: SOMATROPIN
     Dosage: 0.2 MG/M2, DAILY
     Route: 065
  8. SOMATROPIN. [Suspect]
     Active Substance: SOMATROPIN
     Indication: GROWTH HORMONE DEFICIENCY
     Dosage: 0.7 MG/M2, UNKNOWN
     Route: 065
     Dates: start: 2019
  9. SOMATROPIN. [Suspect]
     Active Substance: SOMATROPIN
     Dosage: 0.2 MG/M2, UNKNOWN
     Route: 065
     Dates: start: 2020
  10. SOMATROPIN. [Suspect]
     Active Substance: SOMATROPIN
     Dosage: 0.3 MG/M2
     Route: 065
     Dates: start: 2019
  11. NORDITROPIN [Suspect]
     Active Substance: SOMATROPIN
     Indication: PRODUCT USED FOR UNKNOWN INDICATION
     Dosage: 0.1 MG/KG, EVERY OTHER DAY
     Route: 065
  12. NORDITROPIN [Suspect]
     Active Substance: SOMATROPIN
     Dosage: 0.2 MG/M2, DAILY
     Route: 065
     Dates: start: 201905
  13. SOMATROPIN. [Suspect]
     Active Substance: SOMATROPIN
     Dosage: 0.2 MG/M2
     Route: 065
     Dates: start: 2019

REACTIONS (9)
  - Vasogenic cerebral oedema [Recovering/Resolving]
  - Vomiting [Recovering/Resolving]
  - Cerebrospinal fluid leakage [Recovering/Resolving]
  - Intracranial mass [Recovering/Resolving]
  - Nausea [Recovering/Resolving]
  - Depressed level of consciousness [Recovering/Resolving]
  - Brain herniation [Recovering/Resolving]
  - Intracranial pressure increased [Recovering/Resolving]
  - Face oedema [Recovering/Resolving]

NARRATIVE: CASE EVENT DATE: 201905
